FAERS Safety Report 5197979-X (Version None)
Quarter: 2006Q4

REPORT INFORMATION
  Report Type: 
  Country: None (occurrence: None)
  Receive Date: 20061228
  Receipt Date: 20061215
  Transmission Date: 20070319
  Serious: Yes (Hospitalization, Other)
  Sender: FDA-Public Use
  Company Number: 233558

PATIENT
  Age: 7 Year
  Sex: Male
  Weight: 22.2 kg

DRUGS (1)
  1. NUTROPIN [Suspect]
     Indication: GROWTH HORMONE DEFICIENCY
     Dosage: 0.95, QD, SUBCUTANEOUS
     Route: 058
     Dates: start: 20060402

REACTIONS (1)
  - PERICARDITIS [None]
